FAERS Safety Report 7475671-6 (Version None)
Quarter: 2011Q2

REPORT INFORMATION
  Report Type: 
  Country: None (occurrence: None)
  Receive Date: 20110504
  Receipt Date: 20110420
  Transmission Date: 20111010
  Serious: Yes (Hospitalization)
  Sender: FDA-Public Use
  Company Number: 2011SP001386

PATIENT
  Sex: Female

DRUGS (13)
  1. LASIX [Concomitant]
  2. INTAL [Concomitant]
  3. LOXONIN [Concomitant]
  4. CLARITHROMYCIN [Concomitant]
  5. HALCION [Concomitant]
  6. OMEPRAZOLE [Concomitant]
  7. CLEANAL [Concomitant]
  8. ONON [Concomitant]
  9. MUCOSTA [Concomitant]
  10. MEPTIN [Concomitant]
  11. ALVESCO [Suspect]
     Indication: ASTHMA
     Dosage: 400 UG; QD; INHALATION
     Route: 055
     Dates: start: 20090610
  12. CLARUTE-R [Concomitant]
  13. UNIPHYL [Concomitant]

REACTIONS (1)
  - LOWER LIMB FRACTURE [None]
